FAERS Safety Report 9990774 (Version 2)
Quarter: 2014Q2

REPORT INFORMATION
  Report Type: Spontaneous
  Country: US (occurrence: US)
  Receive Date: 20140310
  Receipt Date: 20140402
  Transmission Date: 20141212
  Serious: Yes (Death)
  Sender: FDA-Public Use
  Company Number: US-PFIZER INC-2014067640

PATIENT
  Age: 52 Year
  Sex: Female

DRUGS (1)
  1. THROMBIN-JMI [Suspect]
     Indication: HAEMOSTASIS
     Dosage: 20000 IU, SINGLE (X1)
     Route: 042

REACTIONS (2)
  - Incorrect route of drug administration [Fatal]
  - Death [Fatal]
